FAERS Safety Report 26012621 (Version 1)
Quarter: 2025Q4

REPORT INFORMATION
  Report Type: Spontaneous
  Country: EU (occurrence: EU)
  Receive Date: 20251107
  Receipt Date: 20251107
  Transmission Date: 20260118
  Serious: Yes (Death, Other)
  Sender: EXELIXIS
  Company Number: EU-IPSEN Group, Research and Development-2025-27060

PATIENT
  Age: 56 Year
  Sex: Male

DRUGS (10)
  1. CABOMETYX [Suspect]
     Active Substance: CABOZANTINIB S-MALATE
     Indication: Metastases to liver
     Dosage: UNK
  2. CABOMETYX [Suspect]
     Active Substance: CABOZANTINIB S-MALATE
     Indication: Metastases to peritoneum
  3. IMATINIB [Suspect]
     Active Substance: IMATINIB
     Indication: Metastases to liver
     Dosage: UNK
  4. IMATINIB [Suspect]
     Active Substance: IMATINIB
     Indication: Metastases to peritoneum
  5. SUNITINIB [Suspect]
     Active Substance: SUNITINIB
     Indication: Metastases to liver
     Dosage: UNK
  6. SUNITINIB [Suspect]
     Active Substance: SUNITINIB
     Indication: Metastases to peritoneum
  7. REGORAFENIB [Suspect]
     Active Substance: REGORAFENIB
     Indication: Metastases to liver
     Dosage: UNK
  8. REGORAFENIB [Suspect]
     Active Substance: REGORAFENIB
     Indication: Metastases to peritoneum
  9. GEMCITABINE HYDROCHLORIDE\OXALIPLATIN [Suspect]
     Active Substance: GEMCITABINE HYDROCHLORIDE\OXALIPLATIN
     Indication: Metastases to liver
     Dosage: UNK
  10. GEMCITABINE HYDROCHLORIDE\OXALIPLATIN [Suspect]
     Active Substance: GEMCITABINE HYDROCHLORIDE\OXALIPLATIN
     Indication: Metastases to peritoneum

REACTIONS (2)
  - Death [Fatal]
  - Drug resistance [Unknown]

NARRATIVE: CASE EVENT DATE: 20230101
